FAERS Safety Report 20821979 (Version 1)
Quarter: 2022Q2

REPORT INFORMATION
  Report Type: Spontaneous
  Country: US (occurrence: None)
  Receive Date: 20220512
  Receipt Date: 20220512
  Transmission Date: 20220721
  Serious: Yes (Other)
  Sender: FDA-Public Use
  Company Number: None

PATIENT
  Age: 65 Year
  Sex: Male
  Weight: 142.2 kg

DRUGS (1)
  1. PREGABALIN [Suspect]
     Active Substance: PREGABALIN
     Indication: Neuropathy peripheral
     Dosage: FREQUENCY : 3 TIMES A DAY;?
     Route: 048
     Dates: start: 20191125, end: 20200714

REACTIONS (2)
  - Product substitution issue [None]
  - Electric shock sensation [None]

NARRATIVE: CASE EVENT DATE: 20200714
